FAERS Safety Report 10654553 (Version 1)
Quarter: 2014Q4

REPORT INFORMATION
  Report Type: Spontaneous
  Country: FR (occurrence: FR)
  Receive Date: 20141216
  Receipt Date: 20141216
  Transmission Date: 20150529
  Serious: Yes (Hospitalization)
  Sender: FDA-Public Use
  Company Number: FR-TEVA-528765ISR

PATIENT
  Sex: Male

DRUGS (3)
  1. PREVISCAN [Concomitant]
     Active Substance: FLUINDIONE
     Dosage: STARTED 1 YEAR AGO
     Dates: end: 201412
  2. XARELTO [Concomitant]
     Active Substance: RIVAROXABAN
     Dosage: STARTED 8 DAYS AGO, ONGOING
     Dates: start: 201412
  3. RABEPRAZOLE TEVA 20MG [Suspect]
     Active Substance: RABEPRAZOLE
     Dosage: 20 MILLIGRAM DAILY; STARTED SEVERAL YEARS AGO, ONGOING

REACTIONS (4)
  - Insomnia [Not Recovered/Not Resolved]
  - Abasia [Not Recovered/Not Resolved]
  - Myalgia [Not Recovered/Not Resolved]
  - Feeling hot [Not Recovered/Not Resolved]

NARRATIVE: CASE EVENT DATE: 2014
